FAERS Safety Report 6080863-7 (Version None)
Quarter: 2009Q1

REPORT INFORMATION
  Report Type: 
  Country: None (occurrence: None)
  Receive Date: 20090217
  Receipt Date: 20090205
  Transmission Date: 20090719
  Serious: Yes (Hospitalization)
  Sender: FDA-Public Use
  Company Number: US-PFIZER INC-2007068125

PATIENT
  Sex: Male
  Weight: 87.5 kg

DRUGS (19)
  1. SUNITINIB MALATE [Suspect]
     Indication: RENAL CANCER METASTATIC
     Dosage: 37.5 MG, DAILY X 14 DAYS; 2/1 SCHED.
     Route: 048
     Dates: start: 20070509, end: 20070815
  2. GEMCITABINE [Suspect]
     Indication: RENAL CANCER METASTATIC
     Dosage: 750 MG, DAYS 1 AND 8
     Route: 042
     Dates: start: 20070508, end: 20070814
  3. ATIVAN [Concomitant]
     Indication: INSOMNIA
  4. ATIVAN [Concomitant]
     Indication: ANXIETY
  5. PERCOCET [Concomitant]
     Indication: PAIN
     Dosage: 1-2 TABLETS
  6. ASCORBIC ACID [Concomitant]
     Indication: SUPPLEMENTATION THERAPY
  7. VITAMIN B-12 [Concomitant]
     Indication: SUPPLEMENTATION THERAPY
  8. FERROUS SULFATE TAB [Concomitant]
     Indication: SUPPLEMENTATION THERAPY
  9. TYLENOL [Concomitant]
     Indication: PYREXIA
     Dosage: 2-4 TABLETS,DAILY, AS NECESSARY
  10. PROCRIT [Concomitant]
     Indication: HAEMOGLOBIN DECREASED
     Dates: start: 20070412
  11. SENOKOT [Concomitant]
     Indication: CONSTIPATION
     Dosage: 1-2 TABLETS
     Dates: start: 20070523, end: 20070801
  12. IBUPROFEN [Concomitant]
     Indication: PAIN
     Dosage: 1 TABLET,EVERY EVENING
     Dates: start: 20070401
  13. TUMS [Concomitant]
     Indication: GASTROOESOPHAGEAL REFLUX DISEASE
     Dates: start: 20070515
  14. TUMS [Concomitant]
     Indication: BLOOD CALCIUM DECREASED
  15. LOTRIMIN [Concomitant]
     Indication: RASH
     Dosage: OTC
     Dates: start: 20070718
  16. LASIX [Concomitant]
     Dates: start: 20070611, end: 20070814
  17. CENTRUM [Concomitant]
     Dates: start: 20070724
  18. COLACE [Concomitant]
     Indication: CONSTIPATION
     Dosage: 1 TABLET
     Dates: start: 20070523
  19. NORVASC [Concomitant]
     Indication: HYPERTENSION
     Dates: start: 20070815

REACTIONS (26)
  - ALANINE AMINOTRANSFERASE INCREASED [None]
  - ASPARTATE AMINOTRANSFERASE INCREASED [None]
  - ATELECTASIS [None]
  - BLOOD ALBUMIN DECREASED [None]
  - BLOOD CALCIUM DECREASED [None]
  - BLOOD CREATININE INCREASED [None]
  - BLOOD GLUCOSE INCREASED [None]
  - BLOOD LACTATE DEHYDROGENASE INCREASED [None]
  - BLOOD POTASSIUM INCREASED [None]
  - BLOOD UREA INCREASED [None]
  - CONVULSION [None]
  - HAEMOGLOBIN DECREASED [None]
  - HYPERTENSION [None]
  - LEUKOCYTOSIS [None]
  - LEUKOENCEPHALOPATHY [None]
  - MENINGITIS [None]
  - METABOLIC DISORDER [None]
  - NEUTROPHIL PERCENTAGE INCREASED [None]
  - PALLOR [None]
  - PLATELET COUNT DECREASED [None]
  - PLEURAL EFFUSION [None]
  - PNEUMONIA [None]
  - PROTEIN TOTAL DECREASED [None]
  - RED BLOOD CELL COUNT DECREASED [None]
  - REVERSIBLE POSTERIOR LEUKOENCEPHALOPATHY SYNDROME [None]
  - SINUS DISORDER [None]
